FAERS Safety Report 4397603-X (Version None)
Quarter: 2004Q3

REPORT INFORMATION
  Report Type: 
  Country: None (occurrence: None)
  Receive Date: 20040708
  Receipt Date: 20040625
  Transmission Date: 20050211
  Serious: Yes (Life-Threatening, Hospitalization)
  Sender: FDA-Public Use
  Company Number: 2004RL000075

PATIENT
  Age: 28 Year
  Sex: Male

DRUGS (1)
  1. PROPAFENONE HCL [Suspect]
     Dosage: 4500 MG; X1; PO
     Route: 048

REACTIONS (9)
  - ACIDOSIS [None]
  - COMA [None]
  - DRUG TOXICITY [None]
  - HYPOTENSION [None]
  - INTENTIONAL OVERDOSE [None]
  - NODAL ARRHYTHMIA [None]
  - SINOATRIAL BLOCK [None]
  - SUICIDE ATTEMPT [None]
  - VENTRICULAR ARRHYTHMIA [None]
